FAERS Safety Report 24639478 (Version 3)
Quarter: 2024Q4

REPORT INFORMATION
  Report Type: Spontaneous
  Country: GR (occurrence: GR)
  Receive Date: 20241119
  Receipt Date: 20241211
  Transmission Date: 20250114
  Serious: Yes (Other)
  Sender: CELLTRION
  Company Number: GR-ROCHE-3562727

PATIENT

DRUGS (6)
  1. RITUXIMAB [Suspect]
     Active Substance: RITUXIMAB
     Indication: Thrombotic microangiopathy
     Dosage: 3 DOSE EVERY WEEK/ ONCE EVERY WEEK
     Route: 065
  2. RITUXIMAB [Suspect]
     Active Substance: RITUXIMAB
     Indication: Thrombotic thrombocytopenic purpura
  3. PREDNISOLONE [Suspect]
     Active Substance: PREDNISOLONE
     Indication: Thrombotic microangiopathy
     Dosage: 1 MG/KG/ 1MG/KG/D
     Route: 065
  4. PREDNISOLONE [Suspect]
     Active Substance: PREDNISOLONE
     Indication: Thrombotic thrombocytopenic purpura
  5. ASPIRIN [Suspect]
     Active Substance: ASPIRIN
     Indication: Thrombotic thrombocytopenic purpura
     Dosage: 100 MG, DAILY
     Route: 065
  6. FONDAPARINUX [Concomitant]
     Active Substance: FONDAPARINUX
     Indication: Thrombotic thrombocytopenic purpura
     Dosage: 2.5 MG

REACTIONS (8)
  - Ovarian hyperstimulation syndrome [Recovered/Resolved]
  - Petechiae [Unknown]
  - Platelet count decreased [Unknown]
  - Abdominal pain [Recovered/Resolved]
  - Exposure during pregnancy [Unknown]
  - Disease recurrence [Unknown]
  - Maternal exposure during pregnancy [Unknown]
  - Drug effective for unapproved indication [Unknown]
